FAERS Safety Report 4687724-6 (Version None)
Quarter: 2005Q2

REPORT INFORMATION
  Report Type: 
  Country: None (occurrence: None)
  Receive Date: 20050608
  Receipt Date: 20050608
  Transmission Date: 20051028
  Serious: No
  Sender: FDA-Public Use
  Company Number: None

PATIENT
  Age: 31 Year
  Sex: Female
  Weight: 56.6996 kg

DRUGS (1)
  1. CARMINE [Suspect]
     Indication: DRUG HYPERSENSITIVITY
     Dosage: P.O. MULTIPLE EVENTS MULTIPLE SOURCES
     Route: 048
     Dates: start: 20040927

REACTIONS (2)
  - FOOD ALLERGY [None]
  - SWELLING FACE [None]
